FAERS Safety Report 18455297 (Version 3)
Quarter: 2020Q4

REPORT INFORMATION
  Report Type: Spontaneous
  Country: AU (occurrence: AU)
  Receive Date: 20201102
  Receipt Date: 20201130
  Transmission Date: 20210114
  Serious: Yes (Hospitalization, Other)
  Sender: FDA-Public Use
  Company Number: AU-JAZZ-2020-AU-014195

PATIENT
  Age: 69 Year
  Sex: Male
  Weight: 67.8 kg

DRUGS (2)
  1. ZEPZELCA [Suspect]
     Active Substance: LURBINECTEDIN
     Indication: SMALL CELL LUNG CANCER EXTENSIVE STAGE
     Dosage: 5.5 MILLIGRAM
     Route: 042
     Dates: start: 20201016, end: 20201016
  2. CORTISONE ACETATE. [Concomitant]
     Active Substance: CORTISONE ACETATE
     Indication: PRODUCT USED FOR UNKNOWN INDICATION
     Dosage: UNK
     Dates: start: 202007

REACTIONS (4)
  - Labile hypertension [Recovered/Resolved]
  - Blood creatinine increased [Recovered/Resolved]
  - Left ventricular failure [Recovered/Resolved]
  - Transaminases increased [Recovered/Resolved]

NARRATIVE: CASE EVENT DATE: 20201017
